FAERS Safety Report 7379760-6 (Version None)
Quarter: 2011Q1

REPORT INFORMATION
  Report Type: 
  Country: None (occurrence: None)
  Receive Date: 20110318
  Receipt Date: 20110302
  Transmission Date: 20110831
  Serious: Yes (Other)
  Sender: FDA-Public Use
  Company Number: 2008S1009838

PATIENT
  Age: 64 Year
  Sex: Male

DRUGS (5)
  1. PHOSPHOSODA FLAVOR NOT SPECIFIED [Suspect]
     Indication: NEPHRECTOMY
     Dosage: 90 ML;TOTAL;PO
     Route: 048
     Dates: start: 20051017, end: 20051017
  2. CRESTOR [Concomitant]
  3. ASPIRIN [Concomitant]
  4. ISORDIL [Concomitant]
  5. LISINOPRIL [Concomitant]

REACTIONS (5)
  - PYREXIA [None]
  - MALAISE [None]
  - RENAL FAILURE ACUTE [None]
  - DIARRHOEA [None]
  - RENAL FAILURE CHRONIC [None]
